FAERS Safety Report 9470765 (Version 3)
Quarter: 2015Q2

REPORT INFORMATION
  Report Type: Spontaneous
  Country: US (occurrence: US)
  Receive Date: 20130822
  Receipt Date: 20150604
  Transmission Date: 20150821
  Serious: Yes (Life-Threatening, Congenital Anomaly, Other)
  Sender: FDA-Public Use
  Company Number: US-ELI_LILLY_AND_COMPANY-US201308005407

PATIENT

DRUGS (2)
  1. PROZAC [Suspect]
     Active Substance: FLUOXETINE HYDROCHLORIDE
     Indication: PRODUCT USED FOR UNKNOWN INDICATION
     Dosage: 1 DF, UNKNOWN
     Route: 064
  2. TYLENOL [Concomitant]
     Active Substance: ACETAMINOPHEN

REACTIONS (20)
  - Congenital pulmonary valve atresia [Recovered/Resolved]
  - Pulmonary valve stenosis [Unknown]
  - Ventricular hypertrophy [Unknown]
  - Developmental hip dysplasia [Unknown]
  - Atrial septal defect [Recovered/Resolved with Sequelae]
  - Cardiomegaly [Unknown]
  - Dilatation ventricular [Unknown]
  - Developmental delay [Unknown]
  - Failure to thrive [Recovering/Resolving]
  - Pulmonary valve incompetence [Unknown]
  - Atelectasis [Unknown]
  - Motor developmental delay [Unknown]
  - Speech disorder developmental [Unknown]
  - Foetal exposure during pregnancy [Unknown]
  - Tricuspid valve incompetence [Unknown]
  - Fallot^s tetralogy [Recovered/Resolved with Sequelae]
  - Patent ductus arteriosus [Recovered/Resolved with Sequelae]
  - Decreased appetite [Unknown]
  - Dacryostenosis congenital [Unknown]
  - Exposure during breast feeding [Unknown]
